FAERS Safety Report 7504408-7 (Version None)
Quarter: 2011Q2

REPORT INFORMATION
  Report Type: 
  Country: None (occurrence: None)
  Receive Date: 20110525
  Receipt Date: 20110513
  Transmission Date: 20111010
  Serious: Yes (Other)
  Sender: FDA-Public Use
  Company Number: US-ELI_LILLY_AND_COMPANY-US201105004739

PATIENT
  Sex: Male

DRUGS (3)
  1. HUMALOG [Suspect]
     Dosage: UNK, TID
  2. HUMALOG [Suspect]
     Indication: TYPE 2 DIABETES MELLITUS
     Dosage: UNK UNK, TID
  3. LANTUS [Concomitant]
     Dosage: 100 U, BID

REACTIONS (7)
  - OEDEMA PERIPHERAL [None]
  - GOUT [None]
  - BLOOD GLUCOSE INCREASED [None]
  - FALL [None]
  - DEVICE MALFUNCTION [None]
  - SKIN ULCER [None]
  - VISUAL IMPAIRMENT [None]
